FAERS Safety Report 5304137-4 (Version None)
Quarter: 2007Q2

REPORT INFORMATION
  Report Type: 
  Country: None (occurrence: None)
  Receive Date: 20070423
  Receipt Date: 20070410
  Transmission Date: 20071010
  Serious: Yes (Other)
  Sender: FDA-Public Use
  Company Number: PHEH2007US01336

PATIENT
  Age: 62 Year
  Sex: Female

DRUGS (1)
  1. HYDROCHLOROTHIAZIDE [Suspect]
     Indication: HYPERTENSION
     Dosage: 25 MG, QD
     Route: 048
     Dates: start: 20060901

REACTIONS (16)
  - ALANINE AMINOTRANSFERASE INCREASED [None]
  - ANXIETY [None]
  - BLOOD GLUCOSE INCREASED [None]
  - BRONCHIAL HYPERREACTIVITY [None]
  - BRONCHITIS [None]
  - CHEST DISCOMFORT [None]
  - COUGH [None]
  - DIABETES MELLITUS [None]
  - DYSPNOEA [None]
  - HYPERTENSION [None]
  - LYMPHOPENIA [None]
  - MONOCYTE COUNT DECREASED [None]
  - NEUTROPHIL COUNT INCREASED [None]
  - PROTEIN TOTAL INCREASED [None]
  - SPUTUM DISCOLOURED [None]
  - WHITE BLOOD CELL COUNT INCREASED [None]
